FAERS Safety Report 14396832 (Version 1)
Quarter: 2018Q1

REPORT INFORMATION
  Report Type: Spontaneous
  Country: US (occurrence: US)
  Receive Date: 20180116
  Receipt Date: 20180116
  Transmission Date: 20180509
  Serious: No
  Sender: FDA-Public Use
  Company Number: US-ALLERGAN-1753637US

PATIENT
  Sex: Female

DRUGS (5)
  1. SYSTANE ULTRA [Concomitant]
     Active Substance: POLYETHYLENE GLYCOL 400\PROPYLENE GLYCOL
     Indication: DRY EYE
     Dosage: UNK UNK, Q6HR
     Route: 047
  2. GLUCOSAMINE [Concomitant]
     Active Substance: GLUCOSAMINE
     Indication: PRODUCT USED FOR UNKNOWN INDICATION
     Route: 065
  3. AURIDERM K2 [Concomitant]
     Indication: CONTUSION
     Route: 061
  4. BOTOX COSMETIC [Suspect]
     Active Substance: ONABOTULINUMTOXINA
     Indication: SKIN WRINKLING
     Dosage: UNK, SINGLE
     Route: 030
     Dates: start: 20170907, end: 20170907
  5. CALCIUM [Concomitant]
     Active Substance: CALCIUM
     Indication: PRODUCT USED FOR UNKNOWN INDICATION
     Route: 048

REACTIONS (7)
  - Dry eye [Not Recovered/Not Resolved]
  - Injection site bruising [Unknown]
  - Eyelid oedema [Not Recovered/Not Resolved]
  - Ocular discomfort [Unknown]
  - Injection site mass [Not Recovered/Not Resolved]
  - Contusion [Not Recovered/Not Resolved]
  - Eyelid ptosis [Not Recovered/Not Resolved]
